FAERS Safety Report 4558329-2 (Version None)
Quarter: 2005Q1

REPORT INFORMATION
  Report Type: 
  Country: None (occurrence: None)
  Receive Date: 20050103
  Receipt Date: 20041007
  Transmission Date: 20050727
  Serious: Yes (Other)
  Sender: FDA-Public Use
  Company Number: 2004UW21109

PATIENT
  Age: 70 Year
  Sex: Male
  Weight: 71.667 kg

DRUGS (7)
  1. CRESTOR [Suspect]
     Indication: BLOOD CHOLESTEROL INCREASED
     Dosage: 10 MG PO
     Route: 048
     Dates: start: 20040906
  2. ASPIRIN [Concomitant]
  3. DIAZEPAM [Concomitant]
  4. ALEVE /00256202/ [Concomitant]
  5. FLOMAX [Concomitant]
  6. RHINOCORT [Concomitant]
  7. ZOLOFT [Concomitant]

REACTIONS (1)
  - MICTURITION DISORDER [None]
